FAERS Safety Report 7671115-X (Version None)
Quarter: 2011Q3

REPORT INFORMATION
  Report Type: 
  Country: None (occurrence: None)
  Receive Date: 20110809
  Receipt Date: 20110805
  Transmission Date: 20111222
  Serious: Yes (Life-Threatening)
  Sender: FDA-Public Use
  Company Number: GR-B.I. PHARMACEUTICALS,INC./RIDGEFIELD-2011-DE-04192DE

PATIENT
  Sex: Male
  Weight: 77 kg

DRUGS (9)
  1. DABIGATRAN [Suspect]
     Indication: ATRIAL FIBRILLATION
  2. LASIX [Concomitant]
     Indication: HYPERTENSION
  3. DIGOXIN [Concomitant]
     Indication: ATRIAL FIBRILLATION
     Dosage: 0.25 MG
     Route: 048
  4. INSPRA [Concomitant]
     Indication: CARDIAC FAILURE
     Dosage: 25 MG
     Route: 048
  5. PERINDOPRIL ERBUMINE [Concomitant]
     Indication: HYPERTENSION
     Dosage: 5 MG
     Route: 048
  6. PANTOPRAZOLE [Concomitant]
     Indication: GASTRITIS
     Dosage: 40 MG
     Route: 048
  7. DABIGATRAN [Suspect]
     Indication: CEREBROVASCULAR ACCIDENT PROPHYLAXIS
     Dosage: BLINDED DOSE
     Route: 048
     Dates: start: 20070608, end: 20110712
  8. NITRONG [Concomitant]
     Indication: CORONARY ARTERY DISEASE
     Dosage: 5 MG
     Route: 062
  9. LASIX [Concomitant]
     Indication: CARDIAC FAILURE
     Dosage: 40 MG
     Route: 048

REACTIONS (1)
  - DEEP VEIN THROMBOSIS [None]
